FAERS Safety Report 8935629 (Version 9)
Quarter: 2015Q4

REPORT INFORMATION
  Report Type: Report from Study
  Country: US (occurrence: US)
  Receive Date: 20121130
  Receipt Date: 20151028
  Transmission Date: 20160305
  Serious: Yes (Disabling, Other)
  Sender: FDA-Public Use
  Company Number: PHEH2012US023326

PATIENT
  Sex: Female

DRUGS (4)
  1. MYFORTIC [Suspect]
     Active Substance: MYCOPHENOLATE SODIUM
     Dosage: 2 MG, BID (2MG IN AM AND 2 MG IN PM)
     Route: 065
     Dates: start: 20150616
  2. MYFORTIC [Suspect]
     Active Substance: MYCOPHENOLATE SODIUM
     Dosage: 2 DF, BID
     Route: 048
     Dates: start: 20071008
  3. MYFORTIC [Suspect]
     Active Substance: MYCOPHENOLATE SODIUM
     Indication: LIVER TRANSPLANT
     Dosage: 360 MG, BID
     Route: 048
     Dates: start: 2005
  4. MYFORTIC [Suspect]
     Active Substance: MYCOPHENOLATE SODIUM
     Dosage: 720 MG, BID
     Route: 048

REACTIONS (4)
  - Chronic obstructive pulmonary disease [Unknown]
  - Renal disorder [Unknown]
  - Product use issue [Unknown]
  - Renal failure [Unknown]
